FAERS Safety Report 25490628 (Version 1)
Quarter: 2025Q2

REPORT INFORMATION
  Report Type: Spontaneous
  Country: CA (occurrence: CA)
  Receive Date: 20250628
  Receipt Date: 20250628
  Transmission Date: 20250716
  Serious: Yes (Life-Threatening, Hospitalization, Congenital Anomaly, Other)
  Sender: AMGEN
  Company Number: CA-AMGEN-CANSP2025122123

PATIENT

DRUGS (1)
  1. USTEKINUMAB [Suspect]
     Active Substance: USTEKINUMAB
     Indication: Exposure during pregnancy
     Route: 064

REACTIONS (15)
  - Meconium aspiration syndrome [Unknown]
  - Congenital anomaly [Unknown]
  - Low birth weight baby [Unknown]
  - Gastroenteritis viral [Unknown]
  - Respiratory tract infection bacterial [Unknown]
  - Eye infection [Unknown]
  - Ear infection [Unknown]
  - Nail infection [Unknown]
  - Small for dates baby [Unknown]
  - Gastroenteritis bacterial [Unknown]
  - Urinary tract infection [Unknown]
  - Viral upper respiratory tract infection [Unknown]
  - Cellulitis [Unknown]
  - Premature baby [Unknown]
  - Exposure during pregnancy [Unknown]
